FAERS Safety Report 9097216 (Version 2)
Quarter: 2013Q1

REPORT INFORMATION
  Report Type: Spontaneous
  Country: US (occurrence: US)
  Receive Date: 20130212
  Receipt Date: 20130324
  Transmission Date: 20140127
  Serious: Yes (Hospitalization, Other)
  Sender: FDA-Public Use
  Company Number: US-PFIZER INC-2013054788

PATIENT
  Age: 80 Year
  Sex: Male
  Weight: 73 kg

DRUGS (7)
  1. CADUET [Suspect]
     Dosage: 10/80 MG A DAY
  2. NITROGLYCERIN [Suspect]
     Dosage: AS NEEDED
     Route: 060
  3. ZANTAC [Concomitant]
     Dosage: 75 MG, 1X/DAY
  4. LOPRESSOR [Concomitant]
     Dosage: 125 MG, 2X/DAY
  5. LISINOPRIL [Concomitant]
     Dosage: 5 MG, 1X/DAY
  6. IMDUR [Concomitant]
     Dosage: 30 MG, 1X/DAY
  7. PLAVIX [Concomitant]
     Dosage: UNK

REACTIONS (6)
  - Angina unstable [Recovered/Resolved]
  - Amnesia [Unknown]
  - Cough [Unknown]
  - Limb discomfort [Unknown]
  - Dyspepsia [Unknown]
  - Anaemia [Unknown]
